FAERS Safety Report 8433455-6 (Version None)
Quarter: 2012Q2

REPORT INFORMATION
  Report Type: 
  Country: None (occurrence: None)
  Receive Date: 20120323
  Receipt Date: 20110718
  Transmission Date: 20120825
  Serious: Yes (Other)
  Sender: FDA-Public Use
  Company Number: 163-21880-11061247

PATIENT
  Age: 82 Year
  Sex: Female

DRUGS (4)
  1. WARFARIN SODIUM [Concomitant]
  2. REVLIMID [Suspect]
     Indication: LYMPHATIC DISORDER
     Dosage: 5 MG, 1 IN 1 D, PO; 2.5 MG, 1 IN 2 D, PO
     Route: 048
     Dates: start: 20110101
  3. REVLIMID [Suspect]
     Indication: LYMPHATIC DISORDER
     Dosage: 5 MG, 1 IN 1 D, PO; 2.5 MG, 1 IN 2 D, PO
     Route: 048
     Dates: start: 20110303, end: 20110101
  4. METOPROLOL TARTRATE [Concomitant]

REACTIONS (5)
  - DIZZINESS [None]
  - RED BLOOD CELL COUNT DECREASED [None]
  - WHITE BLOOD CELL COUNT DECREASED [None]
  - ATRIAL FIBRILLATION [None]
  - NAUSEA [None]
